FAERS Safety Report 11801423 (Version 1)
Quarter: 2015Q4

REPORT INFORMATION
  Report Type: Spontaneous
  Country: US (occurrence: US)
  Receive Date: 20151204
  Receipt Date: 20151204
  Transmission Date: 20160305
  Serious: Yes (Other)
  Sender: FDA-Public Use
  Company Number: US-CELGENE-USA-2014113927

PATIENT

DRUGS (4)
  1. BIRINAPANT [Suspect]
     Active Substance: BIRINAPANT
     Route: 041
  2. VIDAZA [Suspect]
     Active Substance: AZACITIDINE
     Indication: MYELODYSPLASTIC SYNDROME
     Route: 041
  3. VIDAZA [Suspect]
     Active Substance: AZACITIDINE
     Route: 058
  4. BIRINAPANT [Suspect]
     Active Substance: BIRINAPANT
     Indication: MYELODYSPLASTIC SYNDROME
     Route: 041

REACTIONS (15)
  - Fatigue [Unknown]
  - Sepsis [Unknown]
  - Anaemia [Unknown]
  - Injection site necrosis [Unknown]
  - Rash pruritic [Unknown]
  - Pneumonia [Unknown]
  - Nausea [Unknown]
  - Cellulitis [Unknown]
  - Leukopenia [Unknown]
  - Respiratory failure [Unknown]
  - Hypoxia [Unknown]
  - Thrombocytopenia [Unknown]
  - Neutropenia [Unknown]
  - Febrile neutropenia [Unknown]
  - Vomiting [Unknown]
